FAERS Safety Report 5092212-1 (Version None)
Quarter: 2006Q3

REPORT INFORMATION
  Report Type: 
  Country: None (occurrence: None)
  Receive Date: 20060828
  Receipt Date: 20060828
  Transmission Date: 20061208
  Serious: Yes (Disabling)
  Sender: FDA-Public Use
  Company Number: None

PATIENT
  Sex: Female
  Weight: 45.5 kg

DRUGS (4)
  1. KETOROLAC TROMETHAMINE [Suspect]
     Indication: PAIN
     Dosage: 15 MG IV
     Route: 042
     Dates: start: 20060210, end: 20060211
  2. KETOROLAC TROMETHAMINE [Suspect]
     Indication: PAIN
     Dosage: 21 MG  IV
     Route: 042
     Dates: start: 20060211, end: 20060211
  3. ACETAMINOPHEN [Concomitant]
  4. MORPHINE [Concomitant]

REACTIONS (5)
  - ABNORMAL BEHAVIOUR [None]
  - CHEST PAIN [None]
  - DRUG INEFFECTIVE [None]
  - DYSTONIA [None]
  - MUSCLE TWITCHING [None]
